FAERS Safety Report 22241445 (Version 4)
Quarter: 2023Q2

REPORT INFORMATION
  Report Type: Report from Study
  Country: US (occurrence: US)
  Receive Date: 20230421
  Receipt Date: 20230519
  Transmission Date: 20230722
  Serious: No
  Sender: FDA-Public Use
  Company Number: US-002147023-NVSC2023US089383

PATIENT
  Sex: Female

DRUGS (11)
  1. METHOTREXATE [Suspect]
     Active Substance: METHOTREXATE
     Indication: Axial spondyloarthritis
     Dosage: UNK
     Route: 065
  2. COSENTYX [Suspect]
     Active Substance: SECUKINUMAB
     Indication: Axial spondyloarthritis
     Dosage: 150 MG, QMO
     Route: 058
  3. RITUXIMAB [Suspect]
     Active Substance: RITUXIMAB
     Indication: Axial spondyloarthritis
     Dosage: UNK
     Route: 065
  4. TRAMADOL [Concomitant]
     Active Substance: TRAMADOL
     Indication: Product used for unknown indication
     Dosage: 100 MG, TID
     Route: 065
  5. IBUPROFEN [Concomitant]
     Active Substance: IBUPROFEN
     Indication: Axial spondyloarthritis
     Dosage: 800 MG
     Route: 065
  6. PREDNISONE [Concomitant]
     Active Substance: PREDNISONE
     Indication: Axial spondyloarthritis
     Dosage: UNK (15-30MG DAILY ALTERNATING)
     Route: 065
  7. OMEPRAZOLE [Concomitant]
     Active Substance: OMEPRAZOLE
     Indication: Axial spondyloarthritis
     Dosage: 20 MG
     Route: 048
  8. ACETAMINOPHEN [Concomitant]
     Active Substance: ACETAMINOPHEN
     Indication: Axial spondyloarthritis
     Dosage: UNK
     Route: 065
  9. ULTRAM [Concomitant]
     Active Substance: TRAMADOL HYDROCHLORIDE
     Indication: Axial spondyloarthritis
     Dosage: 50 MG
     Route: 065
  10. VENLAFAXINE [Concomitant]
     Active Substance: VENLAFAXINE HYDROCHLORIDE
     Indication: Axial spondyloarthritis
     Dosage: UNK
     Route: 065
  11. LEVOTHYROXINE [Concomitant]
     Active Substance: LEVOTHYROXINE
     Indication: Axial spondyloarthritis
     Dosage: 150 MG, QD
     Route: 048

REACTIONS (16)
  - Alopecia [Unknown]
  - Vision blurred [Unknown]
  - Choking sensation [Unknown]
  - Poor quality sleep [Unknown]
  - Oedema peripheral [Unknown]
  - Erythema [Unknown]
  - Tenderness [Unknown]
  - Hypertonia [Unknown]
  - Lipohypertrophy [Unknown]
  - Cushingoid [Unknown]
  - Skin discolouration [Unknown]
  - Movement disorder [Unknown]
  - Gait disturbance [Unknown]
  - Anxiety [Unknown]
  - Depression [Unknown]
  - Drug ineffective for unapproved indication [Unknown]
